FAERS Safety Report 5673198-5 (Version None)
Quarter: 2008Q1

REPORT INFORMATION
  Report Type: 
  Country: None (occurrence: None)
  Receive Date: 20080319
  Receipt Date: 20080317
  Transmission Date: 20080703
  Serious: Yes (Life-Threatening, Hospitalization)
  Sender: FDA-Public Use
  Company Number: SK-BRISTOL-MYERS SQUIBB COMPANY-13819644

PATIENT
  Age: 71 Year
  Sex: Female

DRUGS (5)
  1. CEFZIL [Suspect]
     Indication: UPPER RESPIRATORY TRACT INFECTION
     Route: 048
     Dates: start: 20070608, end: 20070608
  2. MONOPRIL [Concomitant]
  3. MODURETIC 5-50 [Concomitant]
  4. BISOPROLOL FUMARATE [Concomitant]
  5. ANOPYRIN [Concomitant]

REACTIONS (5)
  - ABDOMINAL PAIN [None]
  - BRADYCARDIA [None]
  - CIRCULATORY COLLAPSE [None]
  - DIARRHOEA [None]
  - NAUSEA [None]
